FAERS Safety Report 9722720 (Version 2)
Quarter: 2014Q1

REPORT INFORMATION
  Report Type: Spontaneous
  Country: JP (occurrence: JP)
  Receive Date: 20131202
  Receipt Date: 20140103
  Transmission Date: 20141002
  Serious: Yes (Other)
  Sender: FDA-Public Use
  Company Number: JP-ASTRAZENECA-2013SE86644

PATIENT
  Age: 7571 Day
  Sex: Female

DRUGS (2)
  1. XYLOCAINE POLYAMP [Suspect]
     Indication: NERVE BLOCK
     Route: 053
     Dates: start: 20131115, end: 20131115
  2. SOLU-CORTEF [Concomitant]

REACTIONS (4)
  - Hemiplegia [Recovering/Resolving]
  - Dysuria [Not Recovered/Not Resolved]
  - Altered state of consciousness [Recovering/Resolving]
  - Dysphonia [Recovered/Resolved]
